FAERS Safety Report 7389523-3 (Version None)
Quarter: 2011Q2

REPORT INFORMATION
  Report Type: 
  Country: None (occurrence: None)
  Receive Date: 20110401
  Receipt Date: 20110318
  Transmission Date: 20111010
  Serious: Yes (Hospitalization)
  Sender: FDA-Public Use
  Company Number: PHHY2011MX22845

PATIENT
  Age: 62 Year
  Sex: Male

DRUGS (1)
  1. CO-DIOVAN [Suspect]
     Indication: HYPERTENSION
     Dosage: 160/25 MG, ONE TABLET, DAILY
     Dates: start: 20100901

REACTIONS (1)
  - CARDIAC VALVE DISEASE [None]
